FAERS Safety Report 9188050 (Version 1)
Quarter: 2013Q1

REPORT INFORMATION
  Report Type: Spontaneous
  Country: US (occurrence: US)
  Receive Date: 20130325
  Receipt Date: 20130325
  Transmission Date: 20140127
  Serious: No
  Sender: FDA-Public Use
  Company Number: US-MYLANLABS-2013S1000539

PATIENT
  Sex: Male

DRUGS (3)
  1. FENTANYL TRANSDERMAL SYSTEM [Suspect]
     Indication: BACK PAIN
     Dosage: Q 72H
     Route: 062
  2. ACETAMINOPHEN W/HYDROCODONE BITARTRATE [Suspect]
     Indication: BACK PAIN
     Route: 048
  3. MUSCLE RELAXANTS [Concomitant]
     Indication: MUSCLE SPASMS

REACTIONS (1)
  - Drug screen negative [Not Recovered/Not Resolved]
